FAERS Safety Report 25361567 (Version 3)
Quarter: 2025Q4

REPORT INFORMATION
  Report Type: Spontaneous
  Country: US (occurrence: US)
  Receive Date: 20250527
  Receipt Date: 20251229
  Transmission Date: 20260117
  Serious: Yes (Hospitalization)
  Sender: NOVARTIS
  Company Number: US-002147023-NVSC2025US084459

PATIENT
  Sex: Male

DRUGS (2)
  1. MEKINIST [Suspect]
     Active Substance: TRAMETINIB DIMETHYL SULFOXIDE
     Indication: Hypertrophic cardiomyopathy
     Dosage: 3.5 ML, QD (ORAL SOLUTION, VIA G TUBE)
     Route: 048
     Dates: start: 202504
  2. MEKINIST [Suspect]
     Active Substance: TRAMETINIB DIMETHYL SULFOXIDE
     Indication: Congenital anomaly

REACTIONS (2)
  - Dehydration [Unknown]
  - Off label use [Unknown]
